FAERS Safety Report 7108300-1 (Version None)
Quarter: 2010Q4

REPORT INFORMATION
  Report Type: 
  Country: None (occurrence: None)
  Receive Date: 20101115
  Receipt Date: 20101115
  Transmission Date: 20110411
  Serious: No
  Sender: FDA-Public Use
  Company Number: None

PATIENT
  Age: 83 Year
  Sex: Female
  Weight: 86.1834 kg

DRUGS (2)
  1. CLINDAMYCIN [Suspect]
     Indication: POST PROCEDURAL INFECTION
     Dosage: 300 MG (1 CAP. Q6H ORAL
     Route: 048
     Dates: start: 20101011, end: 20101014
  2. CLINDAMYCIN [Suspect]
     Indication: TOOTH EXTRACTION
     Dosage: 300 MG (1 CAP. Q6H ORAL
     Route: 048
     Dates: start: 20101011, end: 20101014

REACTIONS (4)
  - BURNING SENSATION [None]
  - DYSPEPSIA [None]
  - DYSPNOEA EXERTIONAL [None]
  - OESOPHAGEAL DISORDER [None]
